FAERS Safety Report 9731383 (Version 1)
Quarter: 2013Q4

REPORT INFORMATION
  Report Type: Spontaneous
  Country: JP (occurrence: None)
  Receive Date: 20131203
  Receipt Date: 20131203
  Transmission Date: 20140711
  Serious: Yes (Other)
  Sender: FDA-Public Use
  Company Number: 7252120

PATIENT
  Age: 23 Year
  Sex: Female

DRUGS (1)
  1. L-THYROXINE [Suspect]
     Indication: PRIMARY HYPOTHYROIDISM
     Dosage: 100 MCG, ORAL
     Route: 048

REACTIONS (14)
  - Caesarean section [None]
  - Blood thyroid stimulating hormone increased [None]
  - Hyporeflexia [None]
  - Oedema peripheral [None]
  - Nausea [None]
  - Fatigue [None]
  - Vomiting [None]
  - Maternal exposure during pregnancy [None]
  - Tri-iodothyronine free decreased [None]
  - Thyroxine free decreased [None]
  - Thyroid stimulating immunoglobulin increased [None]
  - Protein total decreased [None]
  - Heart rate increased [None]
  - Blood pressure decreased [None]
